FAERS Safety Report 19271075 (Version 3)
Quarter: 2022Q1

REPORT INFORMATION
  Report Type: Report from Study
  Country: IT (occurrence: IT)
  Receive Date: 20210518
  Receipt Date: 20220215
  Transmission Date: 20220424
  Serious: Yes (Death, Other)
  Sender: FDA-Public Use
  Company Number: IT-PFIZER INC-2021540087

PATIENT
  Sex: Female

DRUGS (4)
  1. CARBOPLATIN [Suspect]
     Active Substance: CARBOPLATIN
     Indication: Ovarian cancer
     Dosage: UNK, CYCLIC (AUC (AREA UNDER THE CURVE) 5, ON DAY 1 FOR SIX 3-WEEKLY CYCLES)
  2. PACLITAXEL [Suspect]
     Active Substance: PACLITAXEL
     Indication: Ovarian cancer
     Dosage: 175 MG/M2, CYCLIC (ON DAY 1 FOR SIX 3-WEEKLY CYCLES)
  3. BEVACIZUMAB [Suspect]
     Active Substance: BEVACIZUMAB
     Indication: Ovarian cancer
     Dosage: 15 MG/KG, CYCLIC (ON DAY 1 FOR SIX 3-WEEKLY CYCLES)
  4. BEVACIZUMAB [Suspect]
     Active Substance: BEVACIZUMAB
     Dosage: 15 MG/KG, CYCLIC (SINGLE AGENT UP TO A MAXIMUM OF 22 TOTAL CYCLES)

REACTIONS (1)
  - Intestinal perforation [Fatal]
